FAERS Safety Report 5391716-1 (Version None)
Quarter: 2007Q3

REPORT INFORMATION
  Report Type: 
  Country: None (occurrence: None)
  Receive Date: 20070719
  Receipt Date: 20070717
  Transmission Date: 20080115
  Serious: Yes (Hospitalization, Other)
  Sender: FDA-Public Use
  Company Number: CA-MERCK-0409CAN00014

PATIENT
  Age: 98 Year
  Sex: Female
  Weight: 43 kg

DRUGS (9)
  1. PRIMAXIN [Suspect]
     Indication: ABDOMINAL ABSCESS
     Route: 042
     Dates: start: 20040820, end: 20040824
  2. PRIMAXIN [Suspect]
     Route: 042
     Dates: start: 20040824, end: 20040831
  3. NITROGLYCERIN [Concomitant]
     Route: 065
  4. AMLODIPINE BESYLATE [Concomitant]
     Route: 065
  5. FUROSEMIDE [Concomitant]
     Route: 065
  6. ACETAMINOPHEN [Concomitant]
     Route: 065
  7. DOMPERIDONE [Concomitant]
     Route: 065
  8. VANCOMYCIN [Concomitant]
     Route: 065
  9. LORAZEPAM [Concomitant]
     Route: 065

REACTIONS (9)
  - ABDOMINAL PAIN [None]
  - ALANINE AMINOTRANSFERASE INCREASED [None]
  - ASPARTATE AMINOTRANSFERASE INCREASED [None]
  - BLOOD ALKALINE PHOSPHATASE INCREASED [None]
  - BLOOD BILIRUBIN INCREASED [None]
  - GAMMA-GLUTAMYLTRANSFERASE INCREASED [None]
  - GENERAL PHYSICAL HEALTH DETERIORATION [None]
  - HEPATITIS CHOLESTATIC [None]
  - NEUTROPHIL COUNT INCREASED [None]
